FAERS Safety Report 11404801 (Version 2)
Quarter: 2015Q3

REPORT INFORMATION
  Report Type: Spontaneous
  Country: US (occurrence: US)
  Receive Date: 20150821
  Receipt Date: 20150824
  Transmission Date: 20151125
  Serious: Yes (Hospitalization, Disabling, Other)
  Sender: FDA-Public Use
  Company Number: US-009507513-1204USA04174

PATIENT
  Sex: Female

DRUGS (3)
  1. FOSAMAX [Suspect]
     Active Substance: ALENDRONATE SODIUM
     Indication: BONE DENSITY DECREASED
     Dosage: 70 MG, UNK
     Route: 048
     Dates: start: 2004, end: 2006
  2. BONIVA [Suspect]
     Active Substance: IBANDRONATE SODIUM
     Indication: BONE DENSITY DECREASED
     Dosage: 150 MG, UNK
     Route: 048
     Dates: start: 20071017, end: 20090519
  3. JARROW FORMULAS BONE UP [Concomitant]
     Indication: ROUTINE HEALTH MAINTENANCE
     Dosage: 1500 MG, QD
     Route: 048
     Dates: start: 2007

REACTIONS (23)
  - Bone disorder [Unknown]
  - Benign breast neoplasm [Unknown]
  - Large intestine polyp [Unknown]
  - Insomnia [Unknown]
  - Diabetic retinopathy [Unknown]
  - Oedema peripheral [Unknown]
  - Fall [Unknown]
  - Vitamin D deficiency [Unknown]
  - Hyperlipidaemia [Unknown]
  - Sleep apnoea syndrome [Unknown]
  - Hepatitis [Unknown]
  - Metabolic syndrome [Unknown]
  - Femur fracture [Recovering/Resolving]
  - Irritable bowel syndrome [Unknown]
  - Haemorrhoidal haemorrhage [Unknown]
  - Diabetes mellitus [Unknown]
  - Surgery [Unknown]
  - Diabetic neuropathy [Unknown]
  - Impaired healing [Not Recovered/Not Resolved]
  - Pain in extremity [Unknown]
  - Hypertension [Unknown]
  - Cardiac failure [Unknown]
  - Blood cholesterol increased [Unknown]

NARRATIVE: CASE EVENT DATE: 20090519
